FAERS Safety Report 8989992 (Version 1)
Quarter: 2012Q4

REPORT INFORMATION
  Report Type: Report from Study
  Country: DK (occurrence: DK)
  Receive Date: 20121228
  Receipt Date: 20121228
  Transmission Date: 20130627
  Serious: Yes (Hospitalization)
  Sender: FDA-Public Use
  Company Number: DK-BAXTER-2012BAX028865

PATIENT
  Age: 68 Year
  Sex: Female
  Weight: 63 kg

DRUGS (16)
  1. SENDOXAN [Suspect]
     Indication: DIFFUSE LARGE B-CELL LYMPHOMA
     Route: 042
  2. SENDOXAN [Suspect]
     Route: 042
     Dates: start: 20110309
  3. RITUXIMAB [Suspect]
     Indication: DIFFUSE LARGE B-CELL LYMPHOMA
     Route: 042
  4. RITUXIMAB [Suspect]
     Route: 042
     Dates: start: 20110309
  5. PREDNISONE [Suspect]
     Indication: DIFFUSE LARGE B-CELL LYMPHOMA
     Route: 048
  6. PREDNISONE [Suspect]
     Route: 048
     Dates: start: 20110309
  7. DOXORUBICIN [Suspect]
     Indication: DIFFUSE LARGE B-CELL LYMPHOMA
     Route: 042
  8. DOXORUBICIN [Suspect]
     Route: 042
     Dates: start: 20110309
  9. VINCRISTINE [Suspect]
     Indication: DIFFUSE LARGE B-CELL LYMPHOMA
     Route: 042
  10. VINCRISTINE [Suspect]
     Route: 042
     Dates: start: 20110309
  11. G-CSF [Suspect]
     Indication: DIFFUSE LARGE B-CELL LYMPHOMA
     Route: 058
  12. G-CSF [Suspect]
     Route: 058
     Dates: start: 20110312
  13. METHOTREXATE [Suspect]
     Indication: DIFFUSE LARGE B-CELL LYMPHOMA
     Route: 050
     Dates: start: 20110223
  14. METHOTREXATE [Suspect]
     Route: 050
     Dates: start: 20110228
  15. METHOTREXATE [Suspect]
     Route: 050
     Dates: start: 20110310
  16. METHOTREXATE [Suspect]
     Route: 050
     Dates: start: 20110314

REACTIONS (1)
  - Encephalitis [Recovered/Resolved]
